FAERS Safety Report 12280760 (Version 1)
Quarter: 2016Q2

REPORT INFORMATION
  Report Type: Spontaneous
  Country: US (occurrence: None)
  Receive Date: 20160418
  Receipt Date: 20160418
  Transmission Date: 20160815
  Serious: Yes (Hospitalization, Other)
  Sender: FDA-Public Use
  Company Number: None

PATIENT
  Age: 37 Year
  Sex: Male
  Weight: 82.56 kg

DRUGS (1)
  1. TRIUMEQ [Suspect]
     Active Substance: ABACAVIR SULFATE\DOLUTEGRAVIR SODIUM\LAMIVUDINE
     Indication: VIRAL INFECTION
     Route: 048

REACTIONS (7)
  - Rash [None]
  - Confusional state [None]
  - Disturbance in attention [None]
  - Arthralgia [None]
  - Blood pressure decreased [None]
  - Gingivitis [None]
  - Myalgia [None]

NARRATIVE: CASE EVENT DATE: 20160415
